FAERS Safety Report 8138580-5 (Version None)
Quarter: 2012Q1

REPORT INFORMATION
  Report Type: 
  Country: None (occurrence: None)
  Receive Date: 20120215
  Receipt Date: 20120208
  Transmission Date: 20120608
  Serious: Yes (Hospitalization)
  Sender: FDA-Public Use
  Company Number: CH-ROCHE-1038448

PATIENT
  Age: 74 Year
  Sex: Male

DRUGS (3)
  1. PEMETREXED DISODIUM [Suspect]
     Indication: BRONCHIAL CARCINOMA
     Dosage: LAST DOSE PRIOR TO SAE 10 JAN 2012
     Dates: start: 20111220
  2. CARBOPLATIN [Suspect]
     Indication: BRONCHIAL CARCINOMA
     Dosage: LAST DOSE PRIOR TO SAE 10 JAN 2012
     Dates: start: 20111220
  3. AVASTIN [Suspect]
     Indication: BRONCHIAL CARCINOMA
     Dosage: LAST DOSE PRIOR TO SAE 10 JAN 2012
     Dates: start: 20111220

REACTIONS (1)
  - DECUBITUS ULCER [None]
